FAERS Safety Report 19279994 (Version 1)
Quarter: 2021Q2

REPORT INFORMATION
  Report Type: Spontaneous
  Country: US (occurrence: US)
  Receive Date: 20210520
  Receipt Date: 20210520
  Transmission Date: 20210717
  Serious: No
  Sender: FDA-Public Use
  Company Number: US-PFIZER INC-2021243434

PATIENT
  Age: 73 Year
  Sex: Female
  Weight: 108.84 kg

DRUGS (16)
  1. FASLODEX [Concomitant]
     Active Substance: FULVESTRANT
     Dosage: 250 MG/5ML SYRINGE
  2. PRESERVISION AREDS [Concomitant]
     Active Substance: MINERALS\VITAMINS
     Dosage: UNK
  3. ALPRAZOLAM. [Concomitant]
     Active Substance: ALPRAZOLAM
     Dosage: 100 %
  4. VITAMIN D [ERGOCALCIFEROL] [Concomitant]
     Active Substance: ERGOCALCIFEROL
     Dosage: 10 UG
  5. VICTOZA [Concomitant]
     Active Substance: LIRAGLUTIDE
     Dosage: UNK (2?PAK 0.6 MG/0.1 PEN INJCTR)
  6. ACETAMINOPHEN;HYDROCODONE [Concomitant]
     Active Substance: ACETAMINOPHEN\HYDROCODONE
     Dosage: UNK
  7. ATORVASTATIN CALCIUM. [Concomitant]
     Active Substance: ATORVASTATIN CALCIUM
     Dosage: 20 MG
  8. COLACE [Concomitant]
     Active Substance: DOCUSATE SODIUM
     Dosage: 100 MG
  9. LEVOTHYROXINE SODIUM. [Concomitant]
     Active Substance: LEVOTHYROXINE SODIUM
     Dosage: 75 UG
  10. XGEVA [Concomitant]
     Active Substance: DENOSUMAB
     Dosage: UNK [120 MG/1.7 VIAL]
  11. DULOXETINE HCL [Concomitant]
     Active Substance: DULOXETINE HYDROCHLORIDE
     Dosage: 20 MG
  12. MIRALAX [Concomitant]
     Active Substance: POLYETHYLENE GLYCOL 3350
     Dosage: UNK (17G/DOSE POWDER)
  13. LOSARTAN AND HYDROCHLOROTHIAZIDE [Concomitant]
     Active Substance: HYDROCHLOROTHIAZIDE\LOSARTAN POTASSIUM
     Dosage: UNK
  14. ASPIRIN 81 [Concomitant]
     Active Substance: ASPIRIN
     Dosage: 81 MG
  15. METOPROLOL SUCCINATE. [Concomitant]
     Active Substance: METOPROLOL SUCCINATE
     Dosage: UNK
  16. IBRANCE [Suspect]
     Active Substance: PALBOCICLIB
     Indication: BREAST CANCER FEMALE
     Dosage: 125 MG, DAILY [1 DAILY FOR 21 DAYS]
     Route: 048
     Dates: start: 20210127

REACTIONS (1)
  - Eye infection [Unknown]
